FAERS Safety Report 8336425-1 (Version None)
Quarter: 2012Q2

REPORT INFORMATION
  Report Type: 
  Country: None (occurrence: None)
  Receive Date: 20120504
  Receipt Date: 20120502
  Transmission Date: 20120825
  Serious: Yes (Death)
  Sender: FDA-Public Use
  Company Number: PHHY2012FR037628

PATIENT
  Sex: Male

DRUGS (2)
  1. EXJADE [Suspect]
     Indication: IRON OVERLOAD
  2. EXJADE [Suspect]
     Indication: HAEMOSIDEROSIS
     Dosage: 250 MG, DAILY
     Dates: start: 20061201, end: 20101223

REACTIONS (3)
  - PNEUMONIA LEGIONELLA [None]
  - TRANSITIONAL CELL CARCINOMA [None]
  - DEATH [None]
